FAERS Safety Report 5495466-2 (Version None)
Quarter: 2007Q4

REPORT INFORMATION
  Report Type: 
  Country: None (occurrence: None)
  Receive Date: 20071023
  Receipt Date: 20071015
  Transmission Date: 20080405
  Serious: Yes (Death, Hospitalization)
  Sender: FDA-Public Use
  Company Number: 13883848

PATIENT
  Sex: Male

DRUGS (4)
  1. EMSAM TRANSDERMAL SYSTEM 6 MG/24HR [Suspect]
     Indication: DEPRESSION
     Dosage: 6 MILLIGRAM, TD
     Route: 062
     Dates: start: 20070726, end: 20070816
  2. ABILIFY [Suspect]
     Dosage: 5 MILLIGRAM, 1 DAY
  3. LITHOBID [Suspect]
     Dosage: .9, 1 DAY
  4. LUNESTA [Concomitant]

REACTIONS (6)
  - CARDIAC FAILURE [None]
  - CERVICAL VERTEBRAL FRACTURE [None]
  - CONVULSION [None]
  - FALL [None]
  - SPINAL CORD COMPRESSION [None]
  - SUICIDAL IDEATION [None]
